FAERS Safety Report 6455133-5 (Version None)
Quarter: 2009Q4

REPORT INFORMATION
  Report Type: 
  Country: None (occurrence: None)
  Receive Date: 20091118
  Receipt Date: 20091106
  Transmission Date: 20100525
  Serious: Yes (Hospitalization, Other)
  Sender: FDA-Public Use
  Company Number: 2009JP006307

PATIENT
  Age: 44 Year
  Sex: Female
  Weight: 63.9 kg

DRUGS (22)
  1. PROGRAF [Suspect]
     Indication: RHEUMATOID ARTHRITIS
     Dosage: 3 MG, UID/QD, ORAL
     Route: 048
     Dates: start: 20070601, end: 20090911
  2. PROGRAF [Suspect]
     Indication: SYSTEMIC LUPUS ERYTHEMATOSUS
     Dosage: 3 MG, UID/QD, ORAL
     Route: 048
     Dates: start: 20070601, end: 20090911
  3. METHOTREXATE [Suspect]
     Indication: RHEUMATOID ARTHRITIS
     Dosage: 15 MG, WEEKLY, ORAL
     Route: 048
     Dates: start: 20070801, end: 20090911
  4. METHOTREXATE [Suspect]
     Indication: SYSTEMIC LUPUS ERYTHEMATOSUS
     Dosage: 15 MG, WEEKLY, ORAL
     Route: 048
     Dates: start: 20070801, end: 20090911
  5. PREDNISOLONE TAB [Suspect]
     Indication: RHEUMATOID ARTHRITIS
     Dosage: 12.5 MG, BID, ORAL
     Route: 048
     Dates: start: 20070401
  6. PREDNISOLONE TAB [Suspect]
     Indication: SYSTEMIC LUPUS ERYTHEMATOSUS
     Dosage: 12.5 MG, BID, ORAL
     Route: 048
     Dates: start: 20070401
  7. SULFASALAZINE [Concomitant]
  8. FOLIAMIN (FOLIC ACID) TABLET [Concomitant]
  9. OMEPRAZON (OMEPRAZOLE) TABLET [Concomitant]
  10. MUCOSTA (REBAMIPIDE) TABLET [Concomitant]
  11. LOXONIN (LOXOPROFEN SODIUM) TABLET [Concomitant]
  12. VOLTAREN [Concomitant]
  13. ONEALFA (ALFACALCIDOL) CAPSULE [Concomitant]
  14. ASPARA-CA (ASPARTATE CALCIUM) TABLET [Concomitant]
  15. ZETIA (EZETIMIBE) TABLET [Concomitant]
  16. ITRIZOLE (ITRACONAZOLE) CAPSULE [Concomitant]
  17. LOCHOL (SIMVASTATIN) TABLET [Concomitant]
  18. LASIX (FUROSEMIDE SODIUM) TABLET [Concomitant]
  19. TOFRANIL [Concomitant]
  20. CLONAZEPAM [Concomitant]
  21. AMOXAPINE [Concomitant]
  22. SENNOSIDE (SENNOSIDE A+B CALCIUM) TABLET [Concomitant]

REACTIONS (10)
  - AGRANULOCYTOSIS [None]
  - BEHCET'S SYNDROME [None]
  - CROHN'S DISEASE [None]
  - CYTOMEGALOVIRUS ENTEROCOLITIS [None]
  - DISSEMINATED INTRAVASCULAR COAGULATION [None]
  - ENTEROCOLITIS BACTERIAL [None]
  - HISTIOCYTOSIS HAEMATOPHAGIC [None]
  - HYPOGAMMAGLOBULINAEMIA [None]
  - INFECTION IN AN IMMUNOCOMPROMISED HOST [None]
  - TUBERCULOSIS GASTROINTESTINAL [None]
